FAERS Safety Report 4631448-8 (Version None)
Quarter: 2005Q2

REPORT INFORMATION
  Report Type: 
  Country: None (occurrence: None)
  Receive Date: 20050407
  Receipt Date: 20050326
  Transmission Date: 20051028
  Serious: Yes (Hospitalization)
  Sender: FDA-Public Use
  Company Number: 2005049736

PATIENT
  Sex: Female
  Weight: 55.3388 kg

DRUGS (5)
  1. OGEN [Suspect]
     Indication: ILL-DEFINED DISORDER
     Dosage: (DAILY INTERVAL: EVERY DAY)
     Dates: start: 19600101
  2. DELTASONE [Suspect]
     Indication: ILL-DEFINED DISORDER
  3. LEVOTHYROXINE SODIUM [Suspect]
     Indication: HYPOTHYROIDISM
  4. ONE-A-DAY (ASCORBIC ACID, CYANOCOBALAMIN, ERGOCALCIFEROL, NICOTINAMIDE [Concomitant]
  5. ASCORBIC ACID [Concomitant]

REACTIONS (27)
  - ABNORMAL SENSATION IN EYE [None]
  - ASTHENIA [None]
  - ASTHMA [None]
  - BODY HEIGHT DECREASED [None]
  - DIABETES MELLITUS [None]
  - DRUG INEFFECTIVE [None]
  - DRY EYE [None]
  - DRY MOUTH [None]
  - EYE INJURY [None]
  - EYE IRRITATION [None]
  - EYE PAIN [None]
  - EYE SWELLING [None]
  - EYELID DISORDER [None]
  - FACE OEDEMA [None]
  - LUNG INFECTION [None]
  - MENTAL IMPAIRMENT [None]
  - MIDDLE INSOMNIA [None]
  - NASAL DRYNESS [None]
  - OSTEOARTHRITIS [None]
  - OSTEOPOROSIS [None]
  - ROAD TRAFFIC ACCIDENT [None]
  - SINUSITIS [None]
  - THIRST [None]
  - VISUAL DISTURBANCE [None]
  - VULVOVAGINAL DRYNESS [None]
  - WEIGHT INCREASED [None]
  - WHIPLASH INJURY [None]
